FAERS Safety Report 14178363 (Version 1)
Quarter: 2017Q4

REPORT INFORMATION
  Report Type: Spontaneous
  Country: US (occurrence: US)
  Receive Date: 20171110
  Receipt Date: 20171110
  Transmission Date: 20180321
  Serious: Yes (Other)
  Sender: FDA-Public Use
  Company Number: US-AMGEN-USASP2017166966

PATIENT
  Age: 71 Year
  Sex: Female

DRUGS (1)
  1. NPLATE [Suspect]
     Active Substance: ROMIPLOSTIM
     Indication: IMMUNE THROMBOCYTOPENIC PURPURA
     Dosage: 3 MUG/KG, QD
     Route: 065

REACTIONS (5)
  - Blindness unilateral [Unknown]
  - Retinal artery thrombosis [Unknown]
  - Therapeutic response unexpected [Unknown]
  - Contusion [Unknown]
  - Fatigue [Unknown]
